FAERS Safety Report 9097758 (Version 1)
Quarter: 2013Q1

REPORT INFORMATION
  Report Type: Spontaneous
  Country: US (occurrence: US)
  Receive Date: 20130212
  Receipt Date: 20130212
  Transmission Date: 20140127
  Serious: No
  Sender: FDA-Public Use
  Company Number: US-BAYER-2013-016054

PATIENT
  Age: 32 Year
  Sex: Female

DRUGS (3)
  1. MIRENA [Suspect]
     Dosage: 20 MCG/24HR, CONT
     Route: 015
     Dates: start: 20130117, end: 20130117
  2. MISOPROSTOL [Concomitant]
     Dosage: 400 MCG/24HR, UNK
  3. IBUPROFENE [Concomitant]
     Indication: ABDOMINAL PAIN

REACTIONS (3)
  - Fear [None]
  - Procedural pain [None]
  - Device difficult to use [None]
